FAERS Safety Report 7875928-0 (Version None)
Quarter: 2011Q4

REPORT INFORMATION
  Report Type: 
  Country: None (occurrence: None)
  Receive Date: 20111031
  Receipt Date: 20111020
  Transmission Date: 20120403
  Serious: Yes (Other)
  Sender: FDA-Public Use
  Company Number: BR-ASTRAZENECA-2011SE63877

PATIENT
  Sex: Male

DRUGS (4)
  1. SYMBICORT [Suspect]
     Indication: RESPIRATORY FAILURE
     Dosage: 320/9 MCG, BID
     Route: 055
     Dates: start: 20080101
  2. SYMBICORT [Suspect]
     Dosage: 320/9 MCG, BID
     Route: 055
  3. SYMBICORT [Suspect]
     Indication: BRONCHITIS
     Dosage: 320/9 MCG, BID
     Route: 055
     Dates: start: 20080101
  4. SYMBICORT [Suspect]
     Dosage: 320/9 MCG, BID
     Route: 055

REACTIONS (4)
  - RESPIRATORY FAILURE [None]
  - DYSPNOEA [None]
  - INCREASED BRONCHIAL SECRETION [None]
  - DRUG INEFFECTIVE FOR UNAPPROVED INDICATION [None]
